FAERS Safety Report 11883592 (Version 1)
Quarter: 2016Q1

REPORT INFORMATION
  Report Type: Spontaneous
  Country: US (occurrence: US)
  Receive Date: 20160101
  Receipt Date: 20160101
  Transmission Date: 20160526
  Serious: Yes (Death)
  Sender: FDA-Public Use
  Company Number: US-CIPLA LTD.-2015US09825

PATIENT

DRUGS (3)
  1. CETUXIMAB [Suspect]
     Active Substance: CETUXIMAB
     Indication: PANCREATIC CARCINOMA
     Dosage: 400 MG/M2, LOADING DOSE
  2. GEMCITABINE [Suspect]
     Active Substance: GEMCITABINE\GEMCITABINE HYDROCHLORIDE
     Indication: PANCREATIC CARCINOMA
     Dosage: 200MG/M2/WEEK BEFORE DOSE ESCALATION
     Route: 065
  3. CETUXIMAB [Suspect]
     Active Substance: CETUXIMAB
     Dosage: 250 MG/M2, LOADING DOSE

REACTIONS (8)
  - Metastases to lung [Fatal]
  - Blood potassium decreased [Unknown]
  - Haemoglobin decreased [Unknown]
  - Fatigue [Unknown]
  - White blood cell count decreased [Unknown]
  - Skin fissures [Unknown]
  - Rash [Unknown]
  - Metastases to bone [Fatal]
